FAERS Safety Report 9348262 (Version 2)
Quarter: 2013Q2

REPORT INFORMATION
  Report Type: Spontaneous
  Country: CO (occurrence: CO)
  Receive Date: 20130614
  Receipt Date: 20130626
  Transmission Date: 20140414
  Serious: Yes (Other)
  Sender: FDA-Public Use
  Company Number: CO-PFIZER INC-2013177923

PATIENT
  Age: 59 Year
  Sex: Male

DRUGS (3)
  1. ADVIL MAX [Suspect]
     Indication: HERNIA PAIN
     Dosage: UNK, EVERY 8 HRS
     Route: 048
     Dates: start: 20130604
  2. CIPROFLOXACIN [Concomitant]
     Indication: URINARY TRACT INFECTION
     Dosage: 500 MG, EVERY 8 HRS
     Dates: start: 20130607
  3. ENALAPRIL [Concomitant]
     Indication: HYPERTENSION
     Dosage: 20 MG, ONCE A DAY
     Dates: start: 2008

REACTIONS (3)
  - Hypertension [Recovered/Resolved]
  - Hypersensitivity [Recovered/Resolved]
  - Vision blurred [Recovered/Resolved]
